FAERS Safety Report 9858400 (Version 2)
Quarter: 2014Q2

REPORT INFORMATION
  Report Type: Spontaneous
  Country: GB (occurrence: None)
  Receive Date: 20140129
  Receipt Date: 20140502
  Transmission Date: 20141212
  Serious: Yes (Life-Threatening, Hospitalization, Disabling, Other)
  Sender: FDA-Public Use
  Company Number: GB-ALKEM-000468

PATIENT
  Age: 24 Year
  Sex: Male
  Weight: 107.95 kg

DRUGS (1)
  1. QUETIAPINE [Suspect]
     Dosage: 750.000000-MG / ORAL
     Route: 048

REACTIONS (9)
  - Prescribed overdose [None]
  - Tardive dyskinesia [None]
  - Diabetes mellitus [None]
  - Weight increased [None]
  - Metabolic syndrome [None]
  - Sleep apnoea syndrome [None]
  - Pallor [None]
  - Glassy eyes [None]
  - Dyspnoea [None]
